FAERS Safety Report 18260018 (Version 1)
Quarter: 2020Q3

REPORT INFORMATION
  Report Type: Spontaneous
  Country: US (occurrence: US)
  Receive Date: 20200913
  Receipt Date: 20200913
  Transmission Date: 20201103
  Serious: Yes (Other)
  Sender: FDA-Public Use
  Company Number: US-AMGEN-USASP2020145414

PATIENT
  Age: 71 Year
  Sex: Female

DRUGS (4)
  1. NPLATE [Suspect]
     Active Substance: ROMIPLOSTIM
     Indication: IMMUNE THROMBOCYTOPENIA
     Dosage: UNK
     Route: 065
     Dates: start: 201403
  2. NPLATE [Suspect]
     Active Substance: ROMIPLOSTIM
     Dosage: 505 MICROGRAM
     Route: 065
     Dates: start: 20200901
  3. PROMACTA [Concomitant]
     Active Substance: ELTROMBOPAG OLAMINE
     Dosage: UNK
  4. PROMACTA [Concomitant]
     Active Substance: ELTROMBOPAG OLAMINE
     Dosage: UNK
     Dates: start: 20200904

REACTIONS (2)
  - Therapeutic product effect incomplete [Unknown]
  - Haemothorax [Unknown]

NARRATIVE: CASE EVENT DATE: 201911
